FAERS Safety Report 8869099 (Version 2)
Quarter: 2013Q1

REPORT INFORMATION
  Report Type: Spontaneous
  Country: DK (occurrence: None)
  Receive Date: 20121022
  Receipt Date: 20121113
  Transmission Date: 20140127
  Serious: Yes (Congenital Anomaly, Other)
  Sender: FDA-Public Use
  Company Number: AUR-APL-2012-04461

PATIENT
  Sex: 0

DRUGS (3)
  1. LAMOTRIGINE (LAMOTRIGINE) [Suspect]
     Indication: PRODUCT USED FOR UNKNOWN INDICATION
     Dosage: TRSNSPLACENTAL
     Route: 064
  2. LEVETIRACETAM [Suspect]
     Indication: EPILEPSY
     Dosage: 100 OT. (UNITS NOT PROVIDED, TRANSPLACENTAL
     Route: 064
  3. VALPROIC ACID [Suspect]
     Indication: PRODUCT USED FOR UNKNOWN INDICATION
     Dosage: TRANSPLANTATION
     Route: 064

REACTIONS (2)
  - Craniosynostosis [None]
  - Maternal drugs affecting foetus [None]
